FAERS Safety Report 13130170 (Version 3)
Quarter: 2017Q4

REPORT INFORMATION
  Report Type: Spontaneous
  Country: US (occurrence: US)
  Receive Date: 20170119
  Receipt Date: 20171221
  Transmission Date: 20180320
  Serious: Yes (Other)
  Sender: FDA-Public Use
  Company Number: US-UCBSA-2016031772

PATIENT
  Age: 41 Year
  Sex: Female

DRUGS (1)
  1. KEPPRA [Suspect]
     Active Substance: LEVETIRACETAM
     Indication: EPILEPSY
     Dosage: 750 MG, 2X/DAY (BID)
     Dates: start: 20010101

REACTIONS (5)
  - Pregnancy [Unknown]
  - Neuroendocrine carcinoma metastatic [Not Recovered/Not Resolved]
  - Complication of pregnancy [Not Recovered/Not Resolved]
  - Breast cancer [Not Recovered/Not Resolved]
  - Hepatic cirrhosis [Not Recovered/Not Resolved]

NARRATIVE: CASE EVENT DATE: 201610
